FAERS Safety Report 6977676-8 (Version None)
Quarter: 2010Q3

REPORT INFORMATION
  Report Type: 
  Country: None (occurrence: None)
  Receive Date: 20100913
  Receipt Date: 20100903
  Transmission Date: 20110219
  Serious: No
  Sender: FDA-Public Use
  Company Number: US-BIOGENIDEC-2010BI028571

PATIENT
  Sex: Female

DRUGS (1)
  1. TYSABRI [Suspect]
     Indication: MULTIPLE SCLEROSIS
     Route: 042
     Dates: start: 20080418

REACTIONS (6)
  - FATIGUE [None]
  - HOT FLUSH [None]
  - MALAISE [None]
  - MIDDLE EAR EFFUSION [None]
  - MULTIPLE SCLEROSIS RELAPSE [None]
  - NEEDLE TRACK MARKS [None]
